FAERS Safety Report 8164577-5 (Version None)
Quarter: 2012Q1

REPORT INFORMATION
  Report Type: 
  Country: None (occurrence: None)
  Receive Date: 20120226
  Receipt Date: 20120216
  Transmission Date: 20120608
  Serious: Yes (Hospitalization)
  Sender: FDA-Public Use
  Company Number: US-AMGEN-USASP2012010796

PATIENT
  Age: 64 Year
  Sex: Female

DRUGS (1)
  1. ENBREL [Suspect]
     Indication: RHEUMATOID ARTHRITIS
     Dosage: 25 MG, 2 TIMES/WK
     Dates: start: 20000701, end: 20120101

REACTIONS (6)
  - PNEUMONIA [None]
  - CROHN'S DISEASE [None]
  - CYSTITIS [None]
  - RENAL DISORDER [None]
  - SEPSIS [None]
  - ARTHRALGIA [None]
